FAERS Safety Report 13959575 (Version 1)
Quarter: 2017Q3

REPORT INFORMATION
  Report Type: Spontaneous
  Country: US (occurrence: US)
  Receive Date: 20170911
  Receipt Date: 20170911
  Transmission Date: 20171128
  Serious: No
  Sender: FDA-Public Use
  Company Number: US-ACTELION-A-US2017-159197

PATIENT
  Age: 88 Year
  Sex: Male

DRUGS (5)
  1. FISH OIL [Concomitant]
     Active Substance: FISH OIL
  2. VITAMIN B12 [Concomitant]
     Active Substance: CYANOCOBALAMIN
  3. AMLODIPINE [Concomitant]
     Active Substance: AMLODIPINE BESYLATE
  4. VALCHLOR [Suspect]
     Active Substance: MECHLORETHAMINE
     Indication: MYCOSIS FUNGOIDES
     Dosage: UNK
     Route: 061
     Dates: start: 20170726
  5. MULTIVITAMINS W/MINERALS [Concomitant]
     Active Substance: MINERALS\VITAMINS

REACTIONS (3)
  - Dry skin [Unknown]
  - Localised infection [Unknown]
  - Impaired healing [Unknown]
